FAERS Safety Report 10704486 (Version 1)
Quarter: 2014Q4

REPORT INFORMATION
  Report Type: Report from Study
  Country: US (occurrence: None)
  Receive Date: 20141224
  Receipt Date: 20141224
  Transmission Date: 20150529
  Serious: No
  Sender: FDA-Public Use
  Company Number: CABO-14004843

PATIENT
  Age: 71 Year
  Sex: Male

DRUGS (8)
  1. UROXATRAL (ALFUZOSIN HYDROCHLORIDE) [Concomitant]
  2. VITAMIN D3 [Concomitant]
     Active Substance: CHOLECALCIFEROL
  3. HYDROCODONE (HYDROCODONE) [Concomitant]
     Active Substance: HYDROCODONE
  4. COMETRIQ [Suspect]
     Active Substance: CABOZANTINIB S-MALATE
     Indication: RENAL CANCER
     Route: 048
     Dates: start: 20140920, end: 20141111
  5. PROSCAR [Concomitant]
     Active Substance: FINASTERIDE
  6. ASPIRIN (ACETYLSALICYLIC ACID) [Concomitant]
     Active Substance: ASPIRIN
  7. AMLODIPINE [Concomitant]
     Active Substance: AMLODIPINE BESYLATE
  8. CLINDAMYCIN PHOSPHATE (CLINDAMYCIN PHOSPHATE) [Concomitant]

REACTIONS (6)
  - Lip pain [None]
  - Diarrhoea [None]
  - Palmar-plantar erythrodysaesthesia syndrome [None]
  - Throat irritation [None]
  - Off label use [None]
  - Nasal discomfort [None]
